FAERS Safety Report 17101716 (Version 1)
Quarter: 2019Q4

REPORT INFORMATION
  Report Type: Spontaneous
  Country: US (occurrence: US)
  Receive Date: 20191202
  Receipt Date: 20191202
  Transmission Date: 20200122
  Serious: No
  Sender: FDA-Public Use
  Company Number: US-BAYER-2019-215725

PATIENT
  Age: 55 Year
  Sex: Male

DRUGS (1)
  1. GADAVIST [Suspect]
     Active Substance: GADOBUTROL
     Indication: MAGNETIC RESONANCE IMAGING
     Dosage: 7.5 ML, ONCE
     Dates: start: 20191126, end: 20191126

REACTIONS (6)
  - Erythema [Recovered/Resolved]
  - Lacrimation increased [Recovered/Resolved]
  - Nasal oedema [Recovered/Resolved]
  - Paraesthesia oral [Recovered/Resolved]
  - Ocular hyperaemia [Recovered/Resolved]
  - Sinus congestion [Recovered/Resolved]

NARRATIVE: CASE EVENT DATE: 20191126
